FAERS Safety Report 8211178-6 (Version None)
Quarter: 2012Q1

REPORT INFORMATION
  Report Type: 
  Country: None (occurrence: None)
  Receive Date: 20120228
  Receipt Date: 20110203
  Transmission Date: 20120608
  Serious: Yes (Hospitalization)
  Sender: FDA-Public Use
  Company Number: RB-21860-2011

PATIENT
  Age: 49 Year
  Sex: Female

DRUGS (3)
  1. SUBOXONE [Suspect]
     Indication: PAIN
     Dosage: 12 MG SUBLINGUAL , 8 MG/KG SUBLINGUAL , 8 MG SUBLINGUAL
     Route: 060
     Dates: end: 20090101
  2. SUBOXONE [Suspect]
     Indication: PAIN
     Dosage: 12 MG SUBLINGUAL , 8 MG/KG SUBLINGUAL , 8 MG SUBLINGUAL
     Route: 060
     Dates: start: 20110101
  3. SUBOXONE [Suspect]
     Indication: PAIN
     Dosage: 12 MG SUBLINGUAL , 8 MG/KG SUBLINGUAL , 8 MG SUBLINGUAL
     Route: 060
     Dates: end: 20110101

REACTIONS (6)
  - ANXIETY [None]
  - OFF LABEL USE [None]
  - DRUG WITHDRAWAL SYNDROME [None]
  - NAUSEA [None]
  - INCORRECT ROUTE OF DRUG ADMINISTRATION [None]
  - WEIGHT DECREASED [None]
